FAERS Safety Report 7632511-X (Version None)
Quarter: 2011Q3

REPORT INFORMATION
  Report Type: 
  Country: None (occurrence: None)
  Receive Date: 20110725
  Receipt Date: 20100927
  Transmission Date: 20111222
  Serious: No
  Sender: FDA-Public Use
  Company Number: US-BRISTOL-MYERS SQUIBB COMPANY-15306483

PATIENT
  Age: 73 Year
  Sex: Female
  Weight: 43 kg

DRUGS (11)
  1. COUMADIN [Suspect]
     Dosage: 1 DF = 4MG FIVE DAYS OF THE WEEK, AND 6MG TWO DAYS OF THE WEEK
  2. LISINOPRIL [Concomitant]
  3. NORVASC [Concomitant]
  4. MULTI-VITAMIN [Concomitant]
  5. METFORMIN HCL [Concomitant]
  6. TENOXICAM [Concomitant]
  7. FLECAINIDE ACETATE [Concomitant]
  8. CALCIUM CARBONATE [Concomitant]
  9. HYDROCHLOROTHIAZIDE [Concomitant]
  10. ATENOLOL [Concomitant]
  11. POTASSIUM [Concomitant]

REACTIONS (1)
  - ABDOMINAL DISCOMFORT [None]
